FAERS Safety Report 5744920-4 (Version None)
Quarter: 2008Q2

REPORT INFORMATION
  Report Type: 
  Country: None (occurrence: None)
  Receive Date: 20080520
  Receipt Date: 20080512
  Transmission Date: 20081010
  Serious: Yes (Hospitalization)
  Sender: FDA-Public Use
  Company Number: GB-AMGEN-US280141

PATIENT
  Age: 54 Year
  Sex: Female
  Weight: 82 kg

DRUGS (5)
  1. ENBREL [Suspect]
     Indication: RHEUMATOID ARTHRITIS
     Route: 065
     Dates: start: 20070401, end: 20080214
  2. ENBREL [Suspect]
     Dates: start: 20071001, end: 20080214
  3. STELAZINE [Concomitant]
     Dosage: UNKNOWN
     Route: 065
  4. TRAMADOL HCL [Concomitant]
     Dosage: UNKNOWN
     Route: 065
  5. DOTHIEPIN HYDROCHLORIDE [Concomitant]
     Dosage: UNKNOWN
     Route: 065

REACTIONS (5)
  - ABDOMINAL PAIN [None]
  - CARDIAC FAILURE CONGESTIVE [None]
  - FOOT OPERATION [None]
  - NEUTROPENIA [None]
  - RENAL IMPAIRMENT [None]
